FAERS Safety Report 4810344-7 (Version None)
Quarter: 2005Q4

REPORT INFORMATION
  Report Type: 
  Country: None (occurrence: None)
  Receive Date: 20051026
  Receipt Date: 20051018
  Transmission Date: 20060501
  Serious: Yes (Other)
  Sender: FDA-Public Use
  Company Number: 2005AP05453

PATIENT
  Age: 24175 Day
  Sex: Female

DRUGS (5)
  1. TENORMIN [Suspect]
     Indication: ESSENTIAL HYPERTENSION
     Route: 048
  2. ISOPTIN SR [Interacting]
     Indication: ESSENTIAL HYPERTENSION
     Route: 048
  3. METFORMIN HYDROCHLORIDE [Concomitant]
     Indication: DIABETES MELLITUS
     Route: 048
  4. COVERSYL PLUS [Concomitant]
     Indication: ESSENTIAL HYPERTENSION
  5. GLICLAZIDE [Concomitant]
     Route: 048

REACTIONS (8)
  - ABDOMINAL PAIN [None]
  - BRADYCARDIA [None]
  - DIZZINESS [None]
  - DRUG INTERACTION [None]
  - HYPOTENSION [None]
  - MALAISE [None]
  - NAUSEA [None]
  - SYNCOPE [None]
